FAERS Safety Report 24376423 (Version 2)
Quarter: 2025Q1

REPORT INFORMATION
  Report Type: Spontaneous
  Country: DE (occurrence: DE)
  Receive Date: 20240930
  Receipt Date: 20250217
  Transmission Date: 20250409
  Serious: Yes (Other)
  Sender: GLAXOSMITHKLINE
  Company Number: DE-GLAXOSMITHKLINE-DE2024GSK118961

PATIENT

DRUGS (11)
  1. BELIMUMAB [Suspect]
     Active Substance: BELIMUMAB
     Indication: Lupus nephritis
  2. AZATHIOPRINE [Suspect]
     Active Substance: AZATHIOPRINE
     Indication: Lupus nephritis
  3. DAPSONE [Suspect]
     Active Substance: DAPSONE
     Indication: Lupus nephritis
  4. LUPKYNIS [Suspect]
     Active Substance: VOCLOSPORIN
     Indication: Lupus nephritis
  5. HYDROXYCHLOROQUINE [Suspect]
     Active Substance: HYDROXYCHLOROQUINE
     Indication: Lupus nephritis
     Route: 048
  6. METHOTREXATE [Suspect]
     Active Substance: METHOTREXATE
     Indication: Lupus nephritis
  7. MYCOPHENOLATE MOFETIL [Suspect]
     Active Substance: MYCOPHENOLATE MOFETIL
     Indication: Lupus nephritis
  8. ANIFROLUMAB [Suspect]
     Active Substance: ANIFROLUMAB
     Indication: Lupus nephritis
  9. PREDNISOLONE [Suspect]
     Active Substance: PREDNISOLONE
     Indication: Lupus nephritis
  10. HUMAN IMMUNOGLOBULIN G [Suspect]
     Active Substance: HUMAN IMMUNOGLOBULIN G
     Indication: Lupus nephritis
     Route: 042
  11. CORTISONE [Concomitant]
     Active Substance: CORTISONE
     Indication: Product used for unknown indication

REACTIONS (5)
  - Lupus nephritis [Recovered/Resolved]
  - Autoimmune haemolytic anaemia [Recovered/Resolved]
  - Dermatitis bullous [Recovered/Resolved]
  - Polyarthritis [Recovered/Resolved]
  - Therapy non-responder [Unknown]
